FAERS Safety Report 4796832-0 (Version None)
Quarter: 2005Q4

REPORT INFORMATION
  Report Type: 
  Country: None (occurrence: None)
  Receive Date: 20051013
  Receipt Date: 20051011
  Transmission Date: 20060501
  Serious: Yes (Death)
  Sender: FDA-Public Use
  Company Number: BE-SANOFI-SYNTHELABO-F01200502101

PATIENT
  Sex: Male

DRUGS (5)
  1. OXALIPLATIN [Suspect]
     Indication: COLORECTAL CANCER METASTATIC
     Route: 041
     Dates: start: 20050907, end: 20050907
  2. FLUOROURACIL [Suspect]
     Dosage: 4160 MG EVERY TWO WEEKS
     Route: 042
     Dates: start: 20050907, end: 20050907
  3. BEVACIZUMAB [Suspect]
     Route: 042
     Dates: start: 20050921, end: 20050921
  4. ASPIRIN [Concomitant]
     Dates: start: 19950615, end: 20050924
  5. BIGUANIDES [Concomitant]
     Dates: start: 20041015, end: 20050924

REACTIONS (5)
  - CARDIAC ARREST [None]
  - CHEST PAIN [None]
  - MYOCARDIAL INFARCTION [None]
  - PULMONARY EMBOLISM [None]
  - RESPIRATORY ARREST [None]
